FAERS Safety Report 8373336-X (Version None)
Quarter: 2012Q2

REPORT INFORMATION
  Report Type: 
  Country: None (occurrence: None)
  Receive Date: 20120521
  Receipt Date: 20120516
  Transmission Date: 20120825
  Serious: Yes (Life-Threatening, Hospitalization, Other)
  Sender: FDA-Public Use
  Company Number: JP-PFIZER INC-2012026916

PATIENT
  Age: 35 Year
  Sex: Female
  Weight: 48 kg

DRUGS (3)
  1. VOGLIBOSE [Suspect]
     Indication: SUICIDE ATTEMPT
     Dosage: 26.1 MG, 1X/DAY
     Route: 048
     Dates: start: 20090902, end: 20090902
  2. NORVASC [Suspect]
     Indication: SUICIDE ATTEMPT
     Dosage: 420 MG, 1X/DAY
     Route: 048
     Dates: start: 20090902, end: 20090902
  3. ZOLPIDEM [Suspect]
     Indication: SUICIDE ATTEMPT
     Dosage: 500 MG, 1X/DAY
     Route: 048
     Dates: start: 20090902, end: 20090902

REACTIONS (5)
  - HYPOTENSION [None]
  - OVERDOSE [None]
  - RENAL FAILURE ACUTE [None]
  - SUICIDE ATTEMPT [None]
  - RHABDOMYOLYSIS [None]
